FAERS Safety Report 5596055-1 (Version None)
Quarter: 2008Q1

REPORT INFORMATION
  Report Type: 
  Country: None (occurrence: None)
  Receive Date: 20080118
  Receipt Date: 20071218
  Transmission Date: 20080703
  Serious: Yes (Death, Hospitalization)
  Sender: FDA-Public Use
  Company Number: RU-AMGEN-UK260638

PATIENT
  Sex: Male

DRUGS (3)
  1. PANITUMUMAB [Suspect]
     Indication: SQUAMOUS CELL CARCINOMA
     Route: 041
     Dates: start: 20071204, end: 20071204
  2. CISPLATIN [Suspect]
     Route: 041
     Dates: start: 20071204
  3. FLUOROURACIL [Suspect]
     Route: 041
     Dates: start: 20071204

REACTIONS (1)
  - FEBRILE NEUTROPENIA [None]
